FAERS Safety Report 6528328-X (Version None)
Quarter: 2010Q1

REPORT INFORMATION
  Report Type: 
  Country: None (occurrence: None)
  Receive Date: 20100106
  Receipt Date: 20091218
  Transmission Date: 20100710
  Serious: Yes (Hospitalization, Other)
  Sender: FDA-Public Use
  Company Number: PHHO2009KR15704

PATIENT
  Sex: Male

DRUGS (2)
  1. CERTICAN [Suspect]
     Indication: RENAL TRANSPLANT
     Dosage: 0.75 MG, BID
     Route: 048
     Dates: start: 20091001, end: 20091216
  2. CYCLOSPORINE [Concomitant]
     Indication: RENAL TRANSPLANT
     Dosage: UNK
     Dates: start: 20091211, end: 20091216

REACTIONS (4)
  - BLOOD CREATININE INCREASED [None]
  - FACE OEDEMA [None]
  - OEDEMA PERIPHERAL [None]
  - TRANSPLANT REJECTION [None]
